FAERS Safety Report 19057981 (Version 1)
Quarter: 2021Q1

REPORT INFORMATION
  Report Type: Spontaneous
  Country: US (occurrence: US)
  Receive Date: 20210324
  Receipt Date: 20210324
  Transmission Date: 20210420
  Serious: No
  Sender: FDA-Public Use
  Company Number: US-UPSHER-SMITH LABORATORIES, LLC-2020USL00379

PATIENT
  Sex: Female

DRUGS (1)
  1. PREVALITE [Suspect]
     Active Substance: CHOLESTYRAMINE
     Indication: COLITIS MICROSCOPIC
     Dosage: UNK
     Route: 048

REACTIONS (3)
  - Oropharyngeal discomfort [Not Recovered/Not Resolved]
  - Retching [Not Recovered/Not Resolved]
  - Choking [Not Recovered/Not Resolved]
